FAERS Safety Report 8383869-8 (Version None)
Quarter: 2012Q2

REPORT INFORMATION
  Report Type: 
  Country: None (occurrence: None)
  Receive Date: 20120524
  Receipt Date: 20120516
  Transmission Date: 20120825
  Serious: Yes (Other)
  Sender: FDA-Public Use
  Company Number: US-ACTELION-A-US2012-65962

PATIENT

DRUGS (1)
  1. TRACLEER [Suspect]
     Indication: PULMONARY ARTERIAL HYPERTENSION
     Dosage: UNK
     Route: 048
     Dates: start: 20120323

REACTIONS (5)
  - VOMITING [None]
  - CONSTIPATION [None]
  - DIVERTICULITIS [None]
  - NEOPLASM [None]
  - UPPER EXTREMITY MASS [None]
